FAERS Safety Report 7138760-1 (Version None)
Quarter: 2010Q4

REPORT INFORMATION
  Report Type: 
  Country: None (occurrence: None)
  Receive Date: 20101206
  Receipt Date: 20101123
  Transmission Date: 20110411
  Serious: Yes (Hospitalization, Other)
  Sender: FDA-Public Use
  Company Number: DE-ELI_LILLY_AND_COMPANY-DE200710004374

PATIENT
  Sex: Male

DRUGS (3)
  1. BYETTA [Suspect]
     Indication: DIABETES MELLITUS
     Dosage: 5 UG, 2/D
     Route: 058
     Dates: start: 20070731, end: 20071004
  2. PENTAERYTHRITOL TETRANITRATE [Concomitant]
     Indication: CARDIAC DISORDER
  3. ASPIRIN [Concomitant]

REACTIONS (2)
  - MYASTHENIA GRAVIS [None]
  - TYPE 1 DIABETES MELLITUS [None]
